FAERS Safety Report 6236977-1 (Version None)
Quarter: 2009Q2

REPORT INFORMATION
  Report Type: 
  Country: None (occurrence: None)
  Receive Date: 20090619
  Receipt Date: 20090304
  Transmission Date: 20091009
  Serious: No
  Sender: FDA-Public Use
  Company Number: US-ASTRAZENECA-2009UW05947

PATIENT
  Age: 80 Year
  Sex: Female

DRUGS (8)
  1. SYMBICORT [Suspect]
     Dosage: 160/4.5 MCG, 2 PUFFS TWICE DAILY
     Route: 055
     Dates: start: 20080101
  2. LEVATHROID [Concomitant]
  3. PROTONIX [Concomitant]
  4. EVISTA [Concomitant]
  5. NASACORT [Concomitant]
  6. ALVESCO [Concomitant]
  7. PROAIR HFA [Concomitant]
  8. FEXOFENADINE [Concomitant]

REACTIONS (1)
  - GLAUCOMA [None]
